FAERS Safety Report 10247526 (Version 2)
Quarter: 2014Q2

REPORT INFORMATION
  Report Type: Report from Study
  Country: GB (occurrence: GB)
  Receive Date: 20140619
  Receipt Date: 20140619
  Transmission Date: 20141212
  Serious: Yes (Hospitalization)
  Sender: FDA-Public Use
  Company Number: GB-009507513-1406GBR005437

PATIENT
  Age: 67 Year
  Sex: Male
  Weight: 114 kg

DRUGS (14)
  1. BLINDED EZETIMIBE (+) SIMVASTATIN [Suspect]
     Indication: ACUTE CORONARY SYNDROME
     Dosage: UNK
     Route: 048
     Dates: start: 20070126, end: 20091225
  2. BLINDED THERAPY [Suspect]
     Indication: ACUTE CORONARY SYNDROME
     Dosage: UNK
     Route: 048
     Dates: start: 20070126, end: 20091225
  3. SITAGLIPTIN PHOSPHATE [Suspect]
     Dosage: TOTAL DAILY DOSE: 100MG
     Route: 048
     Dates: start: 20111104
  4. METFORMIN [Suspect]
     Dosage: TOTAL DAILY DOSE: 1 G
     Route: 048
     Dates: start: 20100928
  5. INSULIN [Suspect]
     Dosage: VARIES PER BM
     Route: 058
     Dates: start: 20100927
  6. ALLOPURINOL [Concomitant]
     Dosage: TOTAL DAILY DOSE: 100 MG
     Route: 048
     Dates: start: 20140425
  7. ORAMORPH [Concomitant]
     Dosage: TOTAL DAILY DOSE: 2MG AS REQUIRED TO MAX 12MG
     Route: 048
     Dates: start: 20121031
  8. GTN [Concomitant]
     Dosage: UNK, PRN, FORMULATIOM: SPRAY
     Route: 060
     Dates: start: 19900101
  9. OMEPRAZOLE [Concomitant]
     Dosage: TOTAL DAILY DOSE: 20MG
     Route: 048
     Dates: start: 20100928
  10. WARFARIN [Concomitant]
     Dosage: VARIES PER INR
     Route: 048
     Dates: start: 20091201
  11. FUROSEMIDE [Concomitant]
     Dosage: TOTAL DAILY DOSE: 160MG
     Route: 048
     Dates: start: 20100928
  12. SIMVASTATIN [Concomitant]
     Dosage: TOTAL DAILY DOSE: 40 MG
     Route: 048
     Dates: start: 20100928
  13. RAMIPRIL [Concomitant]
     Dosage: TOTAL DAILY DOSE: 10MG
     Route: 048
     Dates: start: 20120127
  14. CARVEDILOL [Concomitant]
     Dosage: TOTAL DAILY DOSE: 50MG
     Route: 048
     Dates: start: 20111104

REACTIONS (1)
  - Hypoglycaemia [Not Recovered/Not Resolved]
